FAERS Safety Report 5887122-3 (Version None)
Quarter: 2008Q3

REPORT INFORMATION
  Report Type: 
  Country: None (occurrence: None)
  Receive Date: 20080917
  Receipt Date: 20080905
  Transmission Date: 20090109
  Serious: Yes (Hospitalization)
  Sender: FDA-Public Use
  Company Number: FR-PFIZER INC-2008075274

PATIENT
  Age: 86 Year
  Sex: Female

DRUGS (3)
  1. LYRICA [Suspect]
  2. TRAMADOL HCL [Concomitant]
  3. VERATRAN [Concomitant]

REACTIONS (3)
  - CONFUSIONAL STATE [None]
  - DRUG WITHDRAWAL SYNDROME [None]
  - PYREXIA [None]
